FAERS Safety Report 6890515-9 (Version None)
Quarter: 2010Q3

REPORT INFORMATION
  Report Type: 
  Country: None (occurrence: None)
  Receive Date: 20100731
  Receipt Date: 20081110
  Transmission Date: 20110219
  Serious: No
  Sender: FDA-Public Use
  Company Number: US-PFIZER INC-2008095454

PATIENT
  Sex: Male

DRUGS (5)
  1. LIPITOR [Suspect]
     Indication: HYPERCHOLESTEROLAEMIA
     Dates: end: 20081109
  2. LIPITOR [Suspect]
     Indication: DIABETES MELLITUS
  3. INSULIN [Concomitant]
  4. VALSARTAN [Concomitant]
  5. COREG [Concomitant]

REACTIONS (4)
  - ATONIC URINARY BLADDER [None]
  - MUSCULAR WEAKNESS [None]
  - MYALGIA [None]
  - URINARY RETENTION [None]
